FAERS Safety Report 6620875-5 (Version None)
Quarter: 2010Q1

REPORT INFORMATION
  Report Type: 
  Country: None (occurrence: None)
  Receive Date: 20100309
  Receipt Date: 20100129
  Transmission Date: 20100710
  Serious: Yes (Hospitalization, Other)
  Sender: FDA-Public Use
  Company Number: US-BAXTER-2009BH016611

PATIENT
  Age: 41 Year
  Sex: Male
  Weight: 68 kg

DRUGS (51)
  1. HEPARIN SODIUM INJECTION [Suspect]
     Indication: CATHETERISATION CARDIAC
     Route: 042
     Dates: start: 19990118, end: 19990118
  2. HEPARIN SODIUM INJECTION [Suspect]
     Indication: AORTIC VALVE REPLACEMENT
     Route: 042
     Dates: start: 19990118, end: 19990118
  3. HEPARIN SODIUM INJECTION [Suspect]
     Indication: CARDIAC PACEMAKER INSERTION
     Route: 042
     Dates: start: 19990118, end: 19990118
  4. HEPARIN SODIUM INJECTION [Suspect]
     Indication: LUNG OPERATION
     Route: 042
     Dates: start: 19990118, end: 19990118
  5. HEPARIN SODIUM INJECTION [Suspect]
     Route: 042
     Dates: start: 19990122, end: 19990101
  6. HEPARIN SODIUM INJECTION [Suspect]
     Route: 042
     Dates: start: 19990122, end: 19990101
  7. HEPARIN SODIUM INJECTION [Suspect]
     Route: 042
     Dates: start: 19990122, end: 19990101
  8. HEPARIN SODIUM INJECTION [Suspect]
     Route: 042
     Dates: start: 19990122, end: 19990101
  9. HEPARIN SODIUM INJECTION [Suspect]
     Route: 042
     Dates: start: 20070705, end: 20070701
  10. HEPARIN SODIUM INJECTION [Suspect]
     Route: 042
     Dates: start: 20070705, end: 20070701
  11. HEPARIN SODIUM INJECTION [Suspect]
     Route: 042
     Dates: start: 20070705, end: 20070701
  12. HEPARIN SODIUM INJECTION [Suspect]
     Route: 042
     Dates: start: 20070705, end: 20070701
  13. HEPARIN SODIUM INJECTION [Suspect]
     Route: 042
     Dates: start: 20000101, end: 20000101
  14. HEPARIN SODIUM INJECTION [Suspect]
     Route: 042
     Dates: start: 20000101, end: 20000101
  15. HEPARIN SODIUM INJECTION [Suspect]
     Route: 042
     Dates: start: 20000101, end: 20000101
  16. HEPARIN SODIUM INJECTION [Suspect]
     Route: 042
     Dates: start: 20000101, end: 20000101
  17. HEPARIN SODIUM INJECTION [Suspect]
     Route: 065
     Dates: start: 20080313, end: 20080301
  18. HEPARIN SODIUM INJECTION [Suspect]
     Route: 065
     Dates: start: 20080313, end: 20080301
  19. HEPARIN SODIUM INJECTION [Suspect]
     Route: 065
     Dates: start: 20080313, end: 20080301
  20. HEPARIN SODIUM INJECTION [Suspect]
     Route: 065
     Dates: start: 20080313, end: 20080301
  21. HEPARIN SODIUM INJECTION [Suspect]
     Route: 042
     Dates: start: 20071212, end: 20071201
  22. HEPARIN SODIUM INJECTION [Suspect]
     Route: 042
     Dates: start: 20071212, end: 20071201
  23. HEPARIN SODIUM INJECTION [Suspect]
     Route: 042
     Dates: start: 20071212, end: 20071201
  24. HEPARIN SODIUM INJECTION [Suspect]
     Route: 042
     Dates: start: 20071212, end: 20071201
  25. HEPARIN SODIUM INJECTION [Suspect]
     Route: 065
     Dates: start: 20071101, end: 20071101
  26. HEPARIN SODIUM INJECTION [Suspect]
     Route: 065
     Dates: start: 20071101, end: 20071101
  27. HEPARIN SODIUM INJECTION [Suspect]
     Route: 065
     Dates: start: 20071101, end: 20071101
  28. HEPARIN SODIUM INJECTION [Suspect]
     Route: 065
     Dates: start: 20071101, end: 20071101
  29. HEPARIN SODIUM INJECTION [Suspect]
     Route: 042
     Dates: start: 20090130, end: 20090130
  30. HEPARIN SODIUM INJECTION [Suspect]
     Route: 042
     Dates: start: 20090130, end: 20090130
  31. HEPARIN SODIUM INJECTION [Suspect]
     Route: 042
     Dates: start: 20090130, end: 20090130
  32. HEPARIN SODIUM INJECTION [Suspect]
     Route: 042
     Dates: start: 20090130, end: 20090130
  33. HEPARIN SODIUM INJECTION [Suspect]
     Route: 042
     Dates: start: 20090131, end: 20090131
  34. HEPARIN SODIUM INJECTION [Suspect]
     Route: 042
     Dates: start: 20090131, end: 20090131
  35. HEPARIN SODIUM INJECTION [Suspect]
     Route: 042
     Dates: start: 20090131, end: 20090131
  36. HEPARIN SODIUM INJECTION [Suspect]
     Route: 042
     Dates: start: 20090131, end: 20090131
  37. ECOTRIN [Concomitant]
     Indication: DRUG USE FOR UNKNOWN INDICATION
     Route: 065
  38. CARDIZEM [Concomitant]
     Indication: DRUG USE FOR UNKNOWN INDICATION
     Route: 065
  39. TOPROL-XL [Concomitant]
     Indication: DRUG USE FOR UNKNOWN INDICATION
     Route: 065
  40. BETAPACE [Concomitant]
     Indication: DRUG USE FOR UNKNOWN INDICATION
     Route: 065
  41. WARFARIN SODIUM [Concomitant]
     Indication: DRUG USE FOR UNKNOWN INDICATION
     Route: 065
  42. WARFARIN SODIUM [Concomitant]
     Route: 065
  43. LASIX [Concomitant]
     Indication: DRUG USE FOR UNKNOWN INDICATION
     Route: 065
  44. LIPITOR [Concomitant]
     Indication: DRUG USE FOR UNKNOWN INDICATION
     Route: 065
  45. KAY CIEL DURA-TABS [Concomitant]
     Indication: DRUG USE FOR UNKNOWN INDICATION
     Route: 065
  46. SOTALOL [Concomitant]
     Indication: DRUG USE FOR UNKNOWN INDICATION
     Route: 065
  47. MAGNESIUM [Concomitant]
     Indication: DRUG USE FOR UNKNOWN INDICATION
     Route: 065
  48. COZAAR [Concomitant]
     Indication: DRUG USE FOR UNKNOWN INDICATION
     Route: 065
  49. POTASSIUM [Concomitant]
     Indication: DRUG USE FOR UNKNOWN INDICATION
     Route: 065
  50. NATRECOR [Concomitant]
     Indication: DRUG USE FOR UNKNOWN INDICATION
     Route: 065
  51. STEROID INJECTION [Concomitant]
     Indication: DRUG USE FOR UNKNOWN INDICATION
     Route: 065
     Dates: start: 20070701, end: 20071101

REACTIONS (17)
  - ATRIAL FIBRILLATION [None]
  - BILIARY TRACT DISORDER [None]
  - BLOOD PRESSURE FLUCTUATION [None]
  - CARDIAC FAILURE CONGESTIVE [None]
  - DYSPNOEA [None]
  - GALLBLADDER DISORDER [None]
  - HYPERCHOLESTEROLAEMIA [None]
  - HYPERSENSITIVITY [None]
  - HYPOAESTHESIA [None]
  - HYPOXIA [None]
  - OEDEMA MOUTH [None]
  - PARAESTHESIA [None]
  - PHARYNGEAL OEDEMA [None]
  - PLEURAL EFFUSION [None]
  - PNEUMONIA [None]
  - PULMONARY OEDEMA [None]
  - RESPIRATORY FAILURE [None]
